FAERS Safety Report 9197080 (Version 1)
Quarter: 2013Q1

REPORT INFORMATION
  Report Type: Report from Study
  Country: VE (occurrence: VE)
  Receive Date: 20130328
  Receipt Date: 20130328
  Transmission Date: 20140127
  Serious: Yes (Other)
  Sender: FDA-Public Use
  Company Number: VE-ROCHE-1205774

PATIENT
  Sex: Female
  Weight: 42 kg

DRUGS (2)
  1. XELODA [Suspect]
     Indication: GASTRIC CANCER
     Route: 048
     Dates: start: 20121201, end: 20130301
  2. EPIRUBICIN [Concomitant]
     Indication: GASTRIC CANCER

REACTIONS (1)
  - Haematology test abnormal [Unknown]
